FAERS Safety Report 9703993 (Version 2)
Quarter: 2013Q4

REPORT INFORMATION
  Report Type: Spontaneous
  Country: DE (occurrence: DE)
  Receive Date: 20131122
  Receipt Date: 20131213
  Transmission Date: 20140711
  Serious: Yes (Other)
  Sender: FDA-Public Use
  Company Number: US-ASTRAZENECA-2013SE85768

PATIENT
  Sex: Female

DRUGS (1)
  1. BLOPRESS FORTE PLUS [Suspect]
     Indication: PRODUCT USED FOR UNKNOWN INDICATION
     Route: 048
     Dates: start: 201310

REACTIONS (2)
  - Hypertensive crisis [Unknown]
  - Tinnitus [Unknown]
